FAERS Safety Report 20168090 (Version 2)
Quarter: 2022Q1

REPORT INFORMATION
  Report Type: Other
  Country: IT (occurrence: None)
  Receive Date: 20211210
  Receipt Date: 20220216
  Transmission Date: 20220423
  Serious: No
  Sender: FDA-Public Use
  Company Number: IT-ROCHE-2976193

PATIENT
  Age: 23 Year
  Sex: Male
  Weight: 86 kg

DRUGS (4)
  1. OCRELIZUMAB [Suspect]
     Active Substance: OCRELIZUMAB
     Indication: Relapsing-remitting multiple sclerosis
     Route: 042
     Dates: start: 20191106
  2. CARBONE ATTIVO [Concomitant]
     Dosage: DRUG DOSE FIRST ADMINISTERED IS 1 U (UNIT) ;ONGOING: YES
     Route: 048
     Dates: start: 202109
  3. VARIVAX (ITALY) [Concomitant]
     Dosage: DRUG DOSE FIRST ADMINISTERED IS 0.5 ML (MILLILITER CM3) ;ONGOING: NO
     Route: 030
     Dates: start: 20211110, end: 20211110
  4. IBUPROFEN [Concomitant]
     Active Substance: IBUPROFEN
     Dosage: NO
     Route: 048
     Dates: start: 20211113, end: 20211113

REACTIONS (1)
  - Influenza [Recovered/Resolved]

NARRATIVE: CASE EVENT DATE: 20211120
